FAERS Safety Report 8401493-5 (Version None)
Quarter: 2012Q2

REPORT INFORMATION
  Report Type: 
  Country: None (occurrence: None)
  Receive Date: 20120601
  Receipt Date: 20120524
  Transmission Date: 20120825
  Serious: Yes (Hospitalization, Other)
  Sender: FDA-Public Use
  Company Number: US-ASTRAZENECA-2011SE32269

PATIENT
  Age: 59 Year
  Sex: Female
  Weight: 67.1 kg

DRUGS (11)
  1. MEDROL [Concomitant]
     Indication: JOINT SWELLING
     Dates: start: 20030101
  2. NEXIUM [Suspect]
     Indication: GASTROOESOPHAGEAL REFLUX DISEASE
     Route: 048
     Dates: start: 20020101, end: 20090101
  3. NEXIUM [Suspect]
     Dosage: ONCE A DAY EVERYDAY
     Route: 048
     Dates: start: 20040101, end: 20080101
  4. CALCIUM CARBONATE [Concomitant]
  5. LASIX [Concomitant]
     Dates: start: 20080317
  6. SPIRONOLACTONE [Concomitant]
     Dates: start: 20080317
  7. AMITRIPTYLINE HCL [Concomitant]
     Dates: start: 20080317
  8. CLONAZEPAM [Concomitant]
     Dates: start: 20080317
  9. SYNTHROID [Concomitant]
     Dates: start: 20080317
  10. MILK OF MAGNESIA TAB [Concomitant]
  11. MEDROL [Concomitant]
     Indication: OEDEMA PERIPHERAL
     Dates: start: 20030101

REACTIONS (8)
  - OSTEOPOROSIS [None]
  - OSTEOARTHRITIS [None]
  - PAIN [None]
  - LOWER LIMB FRACTURE [None]
  - CELLULITIS [None]
  - ANKLE FRACTURE [None]
  - DEPRESSION [None]
  - OEDEMA PERIPHERAL [None]
